FAERS Safety Report 4831330-7 (Version None)
Quarter: 2005Q4

REPORT INFORMATION
  Report Type: 
  Country: None (occurrence: None)
  Receive Date: 20051118
  Receipt Date: 20051115
  Transmission Date: 20060501
  Serious: Yes (Other)
  Sender: FDA-Public Use
  Company Number: US-BRISTOL-MYERS SQUIBB COMPANY-13184080

PATIENT
  Age: 66 Year
  Sex: Male

DRUGS (1)
  1. DEFINITY [Suspect]
     Route: 040
     Dates: start: 20051115, end: 20051115

REACTIONS (1)
  - CONVULSION [None]
